FAERS Safety Report 5746620-3 (Version None)
Quarter: 2008Q2

REPORT INFORMATION
  Report Type: 
  Country: None (occurrence: None)
  Receive Date: 20080522
  Receipt Date: 20080515
  Transmission Date: 20081010
  Serious: No
  Sender: FDA-Public Use
  Company Number: US-JNJFOC-20080503857

PATIENT
  Sex: Female
  Weight: 96.62 kg

DRUGS (5)
  1. RISPERDAL CONSTA [Suspect]
     Indication: SCHIZOPHRENIA
  2. BENZATROPINE [Concomitant]
     Indication: DEPRESSION
  3. PROVASTATIN [Concomitant]
     Indication: BLOOD CHOLESTEROL INCREASED
  4. ZETIA [Concomitant]
     Indication: BLOOD CHOLESTEROL INCREASED
  5. FLUOXETINE [Concomitant]
     Indication: DEPRESSION

REACTIONS (4)
  - BLOOD CHOLESTEROL INCREASED [None]
  - RED BLOOD CELL ABNORMALITY [None]
  - SENSATION OF HEAVINESS [None]
  - WEIGHT INCREASED [None]
